FAERS Safety Report 5108234-8 (Version None)
Quarter: 2006Q3

REPORT INFORMATION
  Report Type: 
  Country: None (occurrence: None)
  Receive Date: 20060919
  Receipt Date: 20060908
  Transmission Date: 20061208
  Serious: Yes (Hospitalization)
  Sender: FDA-Public Use
  Company Number: AT-JNJFOC-20060204445

PATIENT
  Sex: Male
  Weight: 68 kg

DRUGS (25)
  1. BLINDED; INFLIXIMAB, RECOMBINANT [Suspect]
     Route: 042
  2. BLINDED; INFLIXIMAB, RECOMBINANT [Suspect]
     Route: 042
  3. BLINDED; INFLIXIMAB, RECOMBINANT [Suspect]
     Route: 042
  4. BLINDED; INFLIXIMAB, RECOMBINANT [Suspect]
     Indication: CROHN'S DISEASE
     Route: 042
  5. PLACEBO [Suspect]
     Route: 042
  6. PLACEBO [Suspect]
     Route: 042
  7. PLACEBO [Suspect]
     Route: 042
  8. PLACEBO [Suspect]
     Indication: CROHN'S DISEASE
     Route: 042
  9. AZATHIOPRINE [Suspect]
     Indication: CROHN'S DISEASE
     Route: 048
  10. PLACEBO [Suspect]
     Route: 048
  11. MESALAMINE [Concomitant]
     Indication: CROHN'S DISEASE
     Route: 048
  12. LANSOPRAZOL [Concomitant]
     Route: 048
  13. SALOFALK [Concomitant]
  14. APREDNISLON [Concomitant]
  15. APREDNISLON [Concomitant]
  16. APREDNISLON [Concomitant]
  17. APREDNISLON [Concomitant]
  18. APREDNISLON [Concomitant]
  19. AGOPTON [Concomitant]
  20. ANAEROBEX [Concomitant]
  21. ANAEROBEX [Concomitant]
  22. CIPROFLOXACIN [Concomitant]
  23. CIPROFLOXACIN [Concomitant]
  24. PANTOPRAZOLE SODIUM [Concomitant]
  25. NOVALGIN [Concomitant]

REACTIONS (2)
  - ABDOMINAL ABSCESS [None]
  - ABDOMINAL NEOPLASM [None]
